FAERS Safety Report 16941704 (Version 1)
Quarter: 2019Q4

REPORT INFORMATION
  Report Type: Spontaneous
  Country: US (occurrence: US)
  Receive Date: 20190829
  Receipt Date: 20190829
  Transmission Date: 20200122
  Serious: Yes (Death)
  Sender: FDA-Public Use
  Company Number: None

PATIENT
  Age: 68 Year
  Sex: Female

DRUGS (10)
  1. BENZONATATE. [Concomitant]
     Active Substance: BENZONATATE
  2. ROXICODONE [Concomitant]
     Active Substance: OXYCODONE HYDROCHLORIDE
  3. TESSALOR [Concomitant]
  4. VERZENIO [Suspect]
     Active Substance: ABEMACICLIB
     Indication: BREAST CANCER FEMALE
     Route: 048
     Dates: start: 20180523
  5. IBRANCE [Concomitant]
     Active Substance: PALBOCICLIB
  6. PENTOXIFYLLI [Concomitant]
  7. FASLODEX [Concomitant]
     Active Substance: FULVESTRANT
  8. PREDNISONE. [Concomitant]
     Active Substance: PREDNISONE
  9. LORAZEPAM. [Concomitant]
     Active Substance: LORAZEPAM
  10. ZOLPIDEM [Suspect]
     Active Substance: ZOLPIDEM TARTRATE

REACTIONS (1)
  - Death [None]
